FAERS Safety Report 4374990-X (Version None)
Quarter: 2004Q2

REPORT INFORMATION
  Report Type: 
  Country: None (occurrence: None)
  Receive Date: 20040604
  Receipt Date: 20040521
  Transmission Date: 20050107
  Serious: Yes (Death)
  Sender: FDA-Public Use
  Company Number: BE-JNJFOC-20040505379

PATIENT
  Age: 73 Year
  Sex: Male

DRUGS (5)
  1. PROPULSID [Suspect]
     Indication: IMPAIRED GASTRIC EMPTYING
     Dosage: NO DRUG
  2. MEDROL [Concomitant]
  3. SINTROM [Concomitant]
  4. ADACTONE (SPIRONOLACTONE) [Concomitant]
  5. CORDARONE (AMIDARONE HYDROCHLORIDE) [Concomitant]

REACTIONS (4)
  - FALL [None]
  - RESPIRATORY DEPRESSION [None]
  - SUDDEN DEATH [None]
  - TRAUMATIC INTRACRANIAL HAEMORRHAGE [None]
